FAERS Safety Report 18196584 (Version 1)
Quarter: 2020Q3

REPORT INFORMATION
  Report Type: Spontaneous
  Country: GB (occurrence: GB)
  Receive Date: 20200825
  Receipt Date: 20200825
  Transmission Date: 20201103
  Serious: Yes (Hospitalization)
  Sender: FDA-Public Use
  Company Number: NVSC2020GB230566

PATIENT
  Age: 33 Year
  Sex: Female
  Weight: 58.06 kg

DRUGS (1)
  1. PHENOXYMETHYLPENICILLIN (= PENICILLIN V) [Suspect]
     Active Substance: PENICILLIN V
     Indication: PHARYNGITIS
     Dosage: 2000 MG, QD (2 250MG TABLETS 4 TIMES A DAY FOR 5 DAYS)
     Route: 048
     Dates: start: 20200724, end: 20200728

REACTIONS (6)
  - Haematemesis [Recovering/Resolving]
  - Diarrhoea haemorrhagic [Recovering/Resolving]
  - Malaise [Recovering/Resolving]
  - Nausea [Recovering/Resolving]
  - Haematochezia [Recovered/Resolved]
  - Abdominal pain [Recovering/Resolving]

NARRATIVE: CASE EVENT DATE: 20200726
